FAERS Safety Report 5616239-3 (Version None)
Quarter: 2008Q1

REPORT INFORMATION
  Report Type: 
  Country: None (occurrence: None)
  Receive Date: 20080205
  Receipt Date: 20080121
  Transmission Date: 20080703
  Serious: Yes (Other)
  Sender: FDA-Public Use
  Company Number: 2008S1001213

PATIENT
  Age: 30 Year
  Sex: Female

DRUGS (1)
  1. AMITRIPTYLINE HCL [Suspect]
     Indication: DRUG USE FOR UNKNOWN INDICATION
     Dosage: 600 MG; ; ORAL
     Route: 048
     Dates: start: 20080118, end: 20080118

REACTIONS (2)
  - DIZZINESS [None]
  - INTENTIONAL OVERDOSE [None]
